FAERS Safety Report 5625666-X (Version None)
Quarter: 2008Q1

REPORT INFORMATION
  Report Type: 
  Country: None (occurrence: None)
  Receive Date: 20080207
  Receipt Date: 20080207
  Transmission Date: 20080703
  Serious: Yes (Death, Other)
  Sender: FDA-Public Use
  Company Number: None

PATIENT
  Sex: Male
  Weight: 56.6996 kg

DRUGS (4)
  1. CHANTIX [Suspect]
     Indication: SMOKING CESSATION THERAPY
     Dosage: GRADUAL BUILDUP - VARIED VARIED PO
     Route: 048
     Dates: start: 20061026, end: 20061215
  2. DEPAKOTE [Suspect]
     Indication: BIPOLAR DISORDER
     Dosage: 2 TABLETS 1X AT NIGHT PO
     Route: 048
     Dates: start: 20070122, end: 20070329
  3. DEPAKOTE [Suspect]
     Indication: DEPRESSION
     Dosage: 2 TABLETS 1X AT NIGHT PO
     Route: 048
     Dates: start: 20070122, end: 20070329
  4. WELLBUTRIN XL [Concomitant]

REACTIONS (12)
  - ABNORMAL BEHAVIOUR [None]
  - AGITATION [None]
  - ALCOHOL USE [None]
  - BIPOLAR DISORDER [None]
  - DEPRESSION [None]
  - DRUG INEFFECTIVE [None]
  - FEELING ABNORMAL [None]
  - HOSTILITY [None]
  - IMPAIRED DRIVING ABILITY [None]
  - ROAD TRAFFIC ACCIDENT [None]
  - STRESS [None]
  - SUICIDAL BEHAVIOUR [None]
